FAERS Safety Report 4364748-X (Version None)
Quarter: 2004Q2

REPORT INFORMATION
  Report Type: 
  Country: None (occurrence: None)
  Receive Date: 20040526
  Receipt Date: 20040423
  Transmission Date: 20050107
  Serious: Yes (Hospitalization)
  Sender: FDA-Public Use
  Company Number: PHRM2004FR01629

PATIENT
  Age: 11 Year
  Sex: Male
  Weight: 43 kg

DRUGS (2)
  1. NEORAL [Suspect]
     Indication: BONE MARROW TRANSPLANT
     Dosage: 130 MG, ONCE/SINGLE
     Route: 048
  2. NEORAL [Suspect]
     Dosage: 90 MG, BID
     Route: 048

REACTIONS (6)
  - ACCIDENTAL OVERDOSE [None]
  - BLOOD CREATININE INCREASED [None]
  - CYTOMEGALOVIRUS INFECTION [None]
  - DRUG LEVEL INCREASED [None]
  - HYPERTENSION [None]
  - MEDICATION ERROR [None]
